FAERS Safety Report 8952905 (Version 1)
Quarter: 2012Q4

REPORT INFORMATION
  Report Type: 
  Country: US (occurrence: US)
  Receive Date: 20121203
  Receipt Date: 20121203
  Transmission Date: 20130627
  Serious: Yes (Disabling)
  Sender: FDA-Public Use
  Company Number: CHPA2012US023999

PATIENT
  Age: 52 Year
  Sex: Female

DRUGS (1)
  1. EXCEDRIN MIGRAINE [Suspect]
     Indication: MIGRAINE
     Dosage: Unk, 3 times per month, PRN
     Route: 048

REACTIONS (4)
  - Activities of daily living impaired [Recovered/Resolved]
  - Immobile [Recovered/Resolved]
  - Pain [Recovered/Resolved]
  - Vomiting [Recovered/Resolved]
